FAERS Safety Report 7293753-9 (Version None)
Quarter: 2011Q1

REPORT INFORMATION
  Report Type: 
  Country: None (occurrence: None)
  Receive Date: 20110203
  Receipt Date: 20110118
  Transmission Date: 20110831
  Serious: Yes (Death)
  Sender: FDA-Public Use
  Company Number: B0695072A

PATIENT
  Age: 38 Year
  Sex: Male

DRUGS (8)
  1. CLONAZEPAM [Suspect]
     Dosage: ORAL
     Route: 048
  2. ATORVASTATIN CALCIUM (FORMULATION UNKNOWN) (GENERIC) (ATORVASTATIN CAL [Suspect]
     Dosage: ORAL
     Route: 048
  3. CAFFEINE (FORMULATION UNKNOWN) (GENERIC) (CAFFEINE) [Suspect]
     Dosage: ORAL
     Route: 048
  4. SALICYLATE (FORMULATION UNKNOWN) (GENERIC) (SALICYLATE) [Suspect]
     Dosage: ORAL
     Route: 048
  5. METAXALONE (FORMULATION UNKNOWN) (GENERIC) (METAXALONE) [Suspect]
     Dosage: ORAL
     Route: 048
  6. AMLODIPINE (FORMULATION UNKNOWN) (GENERIC) (AMLODIPINE) [Suspect]
     Dosage: ORAL
     Route: 048
  7. ACETAMINOPHEN [Suspect]
     Dosage: ORAL
     Route: 048
  8. LAMOTRIGINE [Suspect]
     Dosage: ORAL
     Route: 048

REACTIONS (1)
  - COMPLETED SUICIDE [None]
